FAERS Safety Report 19008204 (Version 3)
Quarter: 2022Q3

REPORT INFORMATION
  Report Type: Spontaneous
  Country: US (occurrence: US)
  Receive Date: 20210316
  Receipt Date: 20220927
  Transmission Date: 20221027
  Serious: No
  Sender: FDA-Public Use
  Company Number: US-SA-SAC20210312000424

PATIENT
  Age: 54 Year
  Sex: Female

DRUGS (2)
  1. DUPIXENT [Suspect]
     Active Substance: DUPILUMAB
     Indication: Dermatitis atopic
     Dosage: 300 MG, QOW
     Route: 058
     Dates: start: 202003
  2. ZYRTEC [Concomitant]
     Active Substance: CETIRIZINE HYDROCHLORIDE
     Dosage: UNK

REACTIONS (18)
  - Myalgia [Recovered/Resolved]
  - Bone pain [Recovered/Resolved]
  - Dry skin [Not Recovered/Not Resolved]
  - Abdominal distension [Unknown]
  - Skin exfoliation [Not Recovered/Not Resolved]
  - Weight increased [Unknown]
  - Sleep disorder [Unknown]
  - Eczema [Unknown]
  - Headache [Unknown]
  - Migraine [Unknown]
  - Dizziness postural [Unknown]
  - Neck pain [Unknown]
  - Skin fissures [Unknown]
  - Pruritus [Not Recovered/Not Resolved]
  - Injection site pain [Unknown]
  - Arthralgia [Recovered/Resolved]
  - Eye pruritus [Unknown]
  - Product dose omission issue [Unknown]

NARRATIVE: CASE EVENT DATE: 20210101
